FAERS Safety Report 19106208 (Version 1)
Quarter: 2021Q2

REPORT INFORMATION
  Report Type: Report from Study
  Country: US (occurrence: US)
  Receive Date: 20210407
  Receipt Date: 20210407
  Transmission Date: 20210717
  Serious: Yes (Death, Hospitalization, Other)
  Sender: FDA-Public Use
  Company Number: US-GILEAD-2021-0522694

PATIENT
  Sex: Male
  Weight: 60.1 kg

DRUGS (54)
  1. POTASSIUM CHLORIDE. [Concomitant]
     Active Substance: POTASSIUM CHLORIDE
     Dosage: UNK
     Dates: start: 20210305
  2. LORAZEPAM. [Concomitant]
     Active Substance: LORAZEPAM
     Dosage: UNK
     Dates: start: 20210225, end: 20210331
  3. FLUCONAZOLE. [Concomitant]
     Active Substance: FLUCONAZOLE
     Dosage: UNK
     Dates: start: 20210226
  4. MIRALAX [Concomitant]
     Active Substance: POLYETHYLENE GLYCOL 3350
  5. BACTRIM [Concomitant]
     Active Substance: SULFAMETHOXAZOLE\TRIMETHOPRIM
     Dosage: UNK
     Dates: start: 20210302
  6. ARNUITY ELLIPTA [Concomitant]
     Active Substance: FLUTICASONE FUROATE
  7. KEPPRA [LEVETIRACETAM DIHYDROCHLORIDE] [Concomitant]
     Dosage: UNK
     Dates: start: 20210321
  8. LACTATED RINGERS SOLUTION [Concomitant]
     Active Substance: CALCIUM CHLORIDE\POTASSIUM CHLORIDE\SODIUM CHLORIDE\SODIUM LACTATE
  9. BENADRYL [Concomitant]
     Active Substance: DIPHENHYDRAMINE HYDROCHLORIDE
     Dosage: UNK
     Dates: start: 20210228
  10. ONDANSETRON [Concomitant]
     Active Substance: ONDANSETRON
     Dosage: UNK
     Dates: start: 20210308
  11. CHOLECALCIFEROL [Concomitant]
     Active Substance: CHOLECALCIFEROL
     Dosage: UNK
     Dates: start: 20210226
  12. D10 [Concomitant]
  13. KEPPRA [LEVETIRACETAM DIHYDROCHLORIDE] [Concomitant]
     Dosage: UNK
     Dates: start: 20210323
  14. OMNICEF [Concomitant]
     Active Substance: CEFDINIR
  15. METHYLPREDNISOLONE SODIUM SUCCINATE. [Concomitant]
     Active Substance: METHYLPREDNISOLONE SODIUM SUCCINATE
     Dosage: UNK
     Dates: start: 20210225
  16. ALOXI [Concomitant]
     Active Substance: PALONOSETRON HYDROCHLORIDE
     Dosage: UNK
     Dates: start: 20210302
  17. AMIODARONE [Concomitant]
     Active Substance: AMIODARONE
     Dosage: UNK
     Dates: start: 20210321, end: 20210321
  18. PROPOFOL. [Concomitant]
     Active Substance: PROPOFOL
     Dosage: UNK
     Dates: start: 20210325
  19. OXYCODONE [Concomitant]
     Active Substance: OXYCODONE
     Dosage: UNK
     Dates: start: 20210327
  20. NACL [Concomitant]
     Active Substance: SODIUM CHLORIDE
     Dosage: UNK
     Dates: start: 20210305
  21. SODIUM CHLORIDE. [Concomitant]
     Active Substance: SODIUM CHLORIDE
     Dosage: UNK
     Dates: start: 20210225
  22. FAMOTIDINE. [Concomitant]
     Active Substance: FAMOTIDINE
     Dosage: UNK
     Dates: start: 20210226
  23. LORATADINE. [Concomitant]
     Active Substance: LORATADINE
  24. CYTOXAN [Concomitant]
     Active Substance: CYCLOPHOSPHAMIDE
     Dosage: 680 MG, QD
     Route: 042
     Dates: start: 20210228, end: 20210302
  25. METOPROLOL. [Concomitant]
     Active Substance: METOPROLOL
     Dosage: UNK
     Dates: start: 20210303
  26. FLONASE [Concomitant]
     Active Substance: FLUTICASONE PROPIONATE
  27. ZOVIRAX [Concomitant]
     Active Substance: ACYCLOVIR
  28. LIDODERM [Concomitant]
     Active Substance: LIDOCAINE
  29. LEVAQUIN [Concomitant]
     Active Substance: LEVOFLOXACIN
     Dosage: UNK
     Dates: start: 20210226
  30. MIDAZOLAM. [Concomitant]
     Active Substance: MIDAZOLAM
     Dosage: UNK
     Dates: start: 20210308
  31. ALBUMIN HUMAN [Concomitant]
     Active Substance: ALBUMIN HUMAN
     Dosage: UNK
     Dates: start: 20210308
  32. PROCHLORPERAZINE. [Concomitant]
     Active Substance: PROCHLORPERAZINE
  33. SENOKOT?S [Concomitant]
     Active Substance: DOCUSATE SODIUM\SENNOSIDES
     Dosage: UNK
     Dates: start: 20210225
  34. INSULIN ASPART [Concomitant]
     Active Substance: INSULIN ASPART
     Dosage: UNK
     Dates: end: 20210331
  35. LOVENOX [Concomitant]
     Active Substance: ENOXAPARIN SODIUM
  36. FENTANYL. [Concomitant]
     Active Substance: FENTANYL
     Dosage: UNK
     Dates: start: 20210308
  37. ALBUTEROL [SALBUTAMOL] [Concomitant]
     Active Substance: ALBUTEROL
     Dosage: UNK
     Dates: start: 20210225
  38. NYSTATIN. [Concomitant]
     Active Substance: NYSTATIN
     Dosage: UNK
     Dates: start: 20210307
  39. FLUDARABINE [Concomitant]
     Active Substance: FLUDARABINE PHOSPHATE
     Dosage: 40 MG, QD
     Route: 042
     Dates: start: 20210228, end: 20210302
  40. KTE?X19 [Suspect]
     Active Substance: BREXUCABTAGENE AUTOLEUCEL
     Indication: MANTLE CELL LYMPHOMA
     Dosage: UNK
     Route: 065
     Dates: start: 20210309, end: 20210309
  41. MAGNESIUM SULFATE. [Concomitant]
     Active Substance: MAGNESIUM SULFATE
     Dosage: UNK
     Dates: start: 20210312
  42. MAGNESIUM OXIDE. [Concomitant]
     Active Substance: MAGNESIUM OXIDE
  43. CALCIUM CARBONATE. [Concomitant]
     Active Substance: CALCIUM CARBONATE
  44. NEBUPENT [Concomitant]
     Active Substance: PENTAMIDINE ISETHIONATE
  45. EPHEDRINE. [Concomitant]
     Active Substance: EPHEDRINE
     Dosage: UNK
     Dates: start: 20210329
  46. FUROSEMIDE. [Concomitant]
     Active Substance: FUROSEMIDE
     Dosage: UNK
     Dates: start: 20210227
  47. ACETAMINOPHEN. [Concomitant]
     Active Substance: ACETAMINOPHEN
     Dosage: UNK
     Dates: start: 20210228
  48. DIFLUCAN [Concomitant]
     Active Substance: FLUCONAZOLE
  49. KEPPRA [LEVETIRACETAM DIHYDROCHLORIDE] [Concomitant]
     Dosage: UNK
  50. KEPPRA [LEVETIRACETAM DIHYDROCHLORIDE] [Concomitant]
     Dosage: UNK
     Dates: start: 20210322
  51. MEPRON [Concomitant]
     Active Substance: ATOVAQUONE
  52. AFRIN [OXYMETAZOLINE] [Concomitant]
  53. MAG?OX [Concomitant]
     Active Substance: MAGNESIUM OXIDE
  54. VANCOMYCIN [Concomitant]
     Active Substance: VANCOMYCIN
     Dosage: UNK
     Dates: start: 20210302

REACTIONS (6)
  - Cardiac arrest [Fatal]
  - Neurotoxicity [Not Recovered/Not Resolved]
  - Cytokine release syndrome [Recovered/Resolved]
  - Bacterial sepsis [Fatal]
  - Urinary tract infection staphylococcal [Fatal]
  - Cytokine release syndrome [Recovered/Resolved]

NARRATIVE: CASE EVENT DATE: 20210316
